FAERS Safety Report 18840457 (Version 1)
Quarter: 2021Q1

REPORT INFORMATION
  Report Type: Spontaneous
  Country: CA (occurrence: CA)
  Receive Date: 20210203
  Receipt Date: 20210203
  Transmission Date: 20210419
  Serious: Yes (Other)
  Sender: FDA-Public Use
  Company Number: CA-JNJFOC-20210148497

PATIENT
  Age: 71 Year
  Sex: Female

DRUGS (2)
  1. AZATHIOPRINE. [Concomitant]
     Active Substance: AZATHIOPRINE
     Route: 065
  2. REMICADE [Suspect]
     Active Substance: INFLIXIMAB
     Indication: CROHN^S DISEASE
     Route: 042

REACTIONS (7)
  - Intentional product use issue [Unknown]
  - Off label use [Unknown]
  - Hypersensitivity [Unknown]
  - Crohn^s disease [Unknown]
  - Product use issue [Unknown]
  - Arthralgia [Unknown]
  - Clostridium difficile infection [Unknown]
